FAERS Safety Report 9413853 (Version 5)
Quarter: 2013Q4

REPORT INFORMATION
  Report Type: Spontaneous
  Country: CA (occurrence: CA)
  Receive Date: 20130723
  Receipt Date: 20131010
  Transmission Date: 20140711
  Serious: Yes (Hospitalization, Other)
  Sender: FDA-Public Use
  Company Number: CA-BIOGENIDEC-2013BI065332

PATIENT
  Age: 25 Year
  Sex: Female

DRUGS (2)
  1. TYSABRI [Suspect]
     Indication: MULTIPLE SCLEROSIS
     Route: 042
     Dates: start: 20130412
  2. TEGRETOL [Concomitant]

REACTIONS (5)
  - Petit mal epilepsy [Recovered/Resolved]
  - Urinary tract infection [Recovered/Resolved]
  - Convulsion [Recovered/Resolved]
  - Kidney infection [Recovered/Resolved]
  - Hypersomnia [Not Recovered/Not Resolved]
